FAERS Safety Report 10056094 (Version 1)
Quarter: 2014Q2

REPORT INFORMATION
  Report Type: Spontaneous
  Country: US (occurrence: None)
  Receive Date: 20140402
  Receipt Date: 20140402
  Transmission Date: 20141212
  Serious: Yes (Life-Threatening)
  Sender: FDA-Public Use
  Company Number: None

PATIENT
  Age: 49 Year
  Sex: Female
  Weight: 89 kg

DRUGS (1)
  1. DROSPIRENONE/ETHINYL ESTRADIOL [Suspect]
     Indication: CONTRACEPTION
     Dosage: MONTHS TO YEARS
     Route: 048

REACTIONS (4)
  - Diabetic ketoacidosis [None]
  - Cardio-respiratory arrest [None]
  - Pulmonary embolism [None]
  - Multi-organ disorder [None]
